FAERS Safety Report 7846475-7 (Version None)
Quarter: 2011Q4

REPORT INFORMATION
  Report Type: 
  Country: None (occurrence: None)
  Receive Date: 20111025
  Receipt Date: 20111025
  Transmission Date: 20120403
  Serious: Yes (Other)
  Sender: FDA-Public Use
  Company Number: None

PATIENT
  Age: 21 Year
  Sex: Female
  Weight: 58.967 kg

DRUGS (1)
  1. MIRENA [Suspect]
     Indication: CONTRACEPTION
     Dates: start: 20110324, end: 20111024

REACTIONS (9)
  - ACNE CYSTIC [None]
  - DEPRESSION [None]
  - SUICIDAL IDEATION [None]
  - ABDOMINAL PAIN LOWER [None]
  - OVARIAN CYST [None]
  - APATHY [None]
  - IRRITABILITY [None]
  - MOOD SWINGS [None]
  - PELVIC PAIN [None]
